FAERS Safety Report 19463466 (Version 4)
Quarter: 2021Q4

REPORT INFORMATION
  Report Type: Spontaneous
  Country: GB (occurrence: GB)
  Receive Date: 20210625
  Receipt Date: 20211216
  Transmission Date: 20220303
  Serious: Yes (Death, Hospitalization, Other)
  Sender: FDA-Public Use
  Company Number: GB-009507513-2012GBR002091

PATIENT
  Age: 53 Year
  Sex: Male
  Weight: 122.8 kg

DRUGS (34)
  1. GEMCITABINE HYDROCHLORIDE [Suspect]
     Active Substance: GEMCITABINE HYDROCHLORIDE
     Indication: Leiomyosarcoma
     Dosage: DOSE: 2128 MG, FREQUENCY: D1 AND D8
     Route: 042
     Dates: start: 20201117, end: 20201210
  2. GEMCITABINE HYDROCHLORIDE [Suspect]
     Active Substance: GEMCITABINE HYDROCHLORIDE
     Indication: Undifferentiated sarcoma
     Dosage: DOSE: 1710 MILLIGRAM, FREQUENCY:D1 AND D8
     Route: 042
     Dates: start: 20210304, end: 20210304
  3. GEMCITABINE HYDROCHLORIDE [Suspect]
     Active Substance: GEMCITABINE HYDROCHLORIDE
     Dosage: DOSE: 2660 MG, FREQUENCY: D1 AND D8
     Route: 042
     Dates: start: 20201117, end: 20201124
  4. BISOPROLOL FUMARATE [Suspect]
     Active Substance: BISOPROLOL FUMARATE
     Indication: Coronary artery disease
     Dosage: 7.5 MILLIGRAM, QD
     Route: 048
     Dates: start: 2017, end: 20210308
  5. FUROSEMIDE [Suspect]
     Active Substance: FUROSEMIDE
     Indication: Coronary artery disease
     Dosage: 20 MILLIGRAM, QD
     Route: 048
     Dates: start: 20201125, end: 20210308
  6. LOSARTAN POTASSIUM [Suspect]
     Active Substance: LOSARTAN POTASSIUM
     Indication: Hypertension
     Dosage: 50 MILLIGRAM, QD
     Route: 048
     Dates: start: 20201206, end: 20210308
  7. METOCLOPRAMIDE [Suspect]
     Active Substance: METOCLOPRAMIDE
     Indication: Nausea
     Dosage: 10 MG, DAILY
     Route: 048
     Dates: start: 20201206, end: 2021
  8. OXYCODONE [Suspect]
     Active Substance: OXYCODONE
     Indication: Pelvic pain
     Dosage: 5 MG, PRN
     Route: 048
     Dates: start: 20201105
  9. OXYCODONE [Suspect]
     Active Substance: OXYCODONE
     Dosage: 400 MG, DAILY (QD)
     Route: 048
     Dates: start: 20201105
  10. OXYCONTIN [Suspect]
     Active Substance: OXYCODONE HYDROCHLORIDE
     Indication: Pain
     Dosage: 40 MILLIGRAM, ONCE
     Dates: start: 20210224
  11. OXYCONTIN [Suspect]
     Active Substance: OXYCODONE HYDROCHLORIDE
     Dosage: 30 MILLIGRAM, ONCE
     Route: 048
     Dates: start: 20201105
  12. OXYCONTIN [Suspect]
     Active Substance: OXYCODONE HYDROCHLORIDE
     Dosage: 30 MILLIGRAM, ONCE
     Route: 048
     Dates: start: 20210224
  13. OXYCONTIN [Suspect]
     Active Substance: OXYCODONE HYDROCHLORIDE
     Dosage: UNK
     Dates: start: 20201105
  14. PEMBROLIZUMAB [Suspect]
     Active Substance: PEMBROLIZUMAB
     Indication: Pleomorphic leiomyosarcoma
     Dosage: 200 MILLIGRAM, FREQUENCY: D1
     Route: 042
     Dates: start: 20201210
  15. PEMBROLIZUMAB [Suspect]
     Active Substance: PEMBROLIZUMAB
     Indication: Leiomyosarcoma
     Dosage: 200 MILLIGRAM, FREQUENCY: D1
     Route: 042
     Dates: start: 20210304
  16. PEMBROLIZUMAB [Suspect]
     Active Substance: PEMBROLIZUMAB
     Indication: Undifferentiated sarcoma
     Dosage: 200 MG, EVERY 3 WEEKS (Q3W)
     Route: 042
     Dates: start: 20210708, end: 20210708
  17. PEMBROLIZUMAB [Suspect]
     Active Substance: PEMBROLIZUMAB
     Dosage: 200 MG, EVERY 3 WEEKS (Q3W)
     Route: 042
     Dates: start: 20201117, end: 20210304
  18. ACETAMINOPHEN [Concomitant]
     Active Substance: ACETAMINOPHEN
     Indication: Pelvic pain
     Dosage: 1 GRAM, QD/PRN
     Route: 048
     Dates: start: 2008, end: 20210728
  19. ASPIRIN [Concomitant]
     Active Substance: ASPIRIN
     Indication: Prophylaxis
     Dosage: 75 MILLIGRAM, QD
     Route: 048
     Dates: start: 2017, end: 20210308
  20. ATORVASTATIN [Concomitant]
     Active Substance: ATORVASTATIN
     Indication: Coronary artery disease
     Dosage: 80 MILLIGRAM, ONCE
     Route: 048
     Dates: start: 2017, end: 20210308
  21. ATORVASTATIN [Concomitant]
     Active Substance: ATORVASTATIN
     Dosage: 80 MILLIGRAM, DAILY (QD)
     Route: 048
     Dates: start: 2017
  22. CLOTRIMAZOLE [Concomitant]
     Active Substance: CLOTRIMAZOLE
     Indication: Intertrigo
     Dosage: 2X/DAY (BID)
     Route: 061
     Dates: start: 20201123, end: 20201127
  23. DOCUSATE SODIUM [Concomitant]
     Active Substance: DOCUSATE SODIUM
     Indication: Constipation
     Dosage: 200 MILLIGRAM, BID
     Route: 048
     Dates: start: 2008, end: 2021
  24. GABAPENTIN [Concomitant]
     Active Substance: GABAPENTIN
     Indication: Neuralgia
     Dosage: BID
     Route: 048
     Dates: start: 20201125, end: 20201127
  25. GABAPENTIN [Concomitant]
     Active Substance: GABAPENTIN
     Dosage: 300 MG DAILY (IN THE MORNING)
     Route: 048
     Dates: start: 20201125
  26. GABAPENTIN [Concomitant]
     Active Substance: GABAPENTIN
     Dosage: 600 MG DAILY (IN THE MORNING)
     Route: 048
     Dates: start: 20201125
  27. LANOLIN [Concomitant]
     Active Substance: LANOLIN
     Indication: Rash
     Dosage: 3X/DAY (TID)
     Route: 061
     Dates: start: 20201123, end: 2021
  28. MINERAL OIL [Concomitant]
     Active Substance: MINERAL OIL
     Indication: Rash
     Dosage: UNK, 3X/DAY (TID)
     Route: 061
     Dates: start: 20201123, end: 2021
  29. PETROLATUM [Concomitant]
     Active Substance: PETROLATUM
     Indication: Rash
     Dosage: 3X/DAY (TID)
     Route: 061
     Dates: start: 20201123, end: 2021
  30. LANSOPRAZOLE [Concomitant]
     Active Substance: LANSOPRAZOLE
     Indication: Gastrooesophageal reflux disease
     Dosage: 30 MILLIGRAM, QD
     Route: 048
     Dates: start: 2017, end: 20210308
  31. POLYETHYLENE GLYCOL 3350\POTASSIUM CHLORIDE\SODIUM BICARBONATE\SODIUM [Concomitant]
     Active Substance: POLYETHYLENE GLYCOL 3350\POTASSIUM CHLORIDE\SODIUM BICARBONATE\SODIUM CHLORIDE
     Indication: Constipation
     Dosage: 1 DF, 2X/DAY ( 1 SACHET, BID/PRN)
     Route: 048
     Dates: start: 2008, end: 20210628
  32. LIDOCAINE [Concomitant]
     Active Substance: LIDOCAINE
     Indication: Pain
     Dosage: 3X/DAY (TID)
     Route: 061
     Dates: start: 20201109, end: 2021
  33. SENOKOT [Concomitant]
     Active Substance: SENNOSIDES
     Indication: Constipation
     Dosage: 7.5 MILLIGRAM (ALSO REPORTED AS 2 TABLETS), QD
     Route: 048
     Dates: start: 20200223, end: 20210308
  34. LANOLIN\LIGHT MINERAL OIL\PARAFFIN [Concomitant]
     Active Substance: LANOLIN\LIGHT MINERAL OIL\PARAFFIN

REACTIONS (17)
  - Death [Fatal]
  - Blood bilirubin increased [Fatal]
  - Skin infection [Recovered/Resolved]
  - Cellulitis [Recovered/Resolved]
  - Cardiac failure [Recovered/Resolved]
  - Dyspnoea [Not Recovered/Not Resolved]
  - Fall [Recovered/Resolved]
  - Dizziness postural [Unknown]
  - Pyrexia [Unknown]
  - Urinary retention [Recovered/Resolved]
  - Pneumonia [Recovered/Resolved]
  - Pulmonary hypertension [Unknown]
  - Pneumonia [Recovered/Resolved]
  - Pancreatic mass [Unknown]
  - Biliary obstruction [Unknown]
  - Urinary tract infection [Recovered/Resolved]
  - Constipation [Recovered/Resolved]

NARRATIVE: CASE EVENT DATE: 20201128
